FAERS Safety Report 4930607-4 (Version None)
Quarter: 2006Q1

REPORT INFORMATION
  Report Type: 
  Country: None (occurrence: None)
  Receive Date: 20060302
  Receipt Date: 20050930
  Transmission Date: 20060701
  Serious: Yes (Hospitalization)
  Sender: FDA-Public Use
  Company Number: US-MERCK-0510USA02166

PATIENT
  Age: 77 Year
  Sex: Female
  Weight: 77 kg

DRUGS (2)
  1. VIOXX [Suspect]
     Indication: ARTHRITIS
     Route: 048
     Dates: start: 19990101, end: 20040101
  2. PERCOGESIC [Concomitant]
     Route: 065

REACTIONS (4)
  - ADVERSE EVENT [None]
  - CARDIAC ARREST [None]
  - DYSPNOEA [None]
  - RIB FRACTURE [None]
